FAERS Safety Report 7122395-0 (Version None)
Quarter: 2010Q4

REPORT INFORMATION
  Report Type: 
  Country: None (occurrence: None)
  Receive Date: 20101124
  Receipt Date: 20101119
  Transmission Date: 20110411
  Serious: Yes (Hospitalization)
  Sender: FDA-Public Use
  Company Number: US-US-EMD SERONO, INC.-7028769

PATIENT
  Sex: Male
  Weight: 22 kg

DRUGS (2)
  1. SAIZEN [Suspect]
     Indication: GROWTH HORMONE DEFICIENCY
     Dates: start: 20080101
  2. UNSPECIFIED MEDICATIONS [Concomitant]

REACTIONS (3)
  - CONVULSION [None]
  - FALL [None]
  - SYNCOPE [None]
